FAERS Safety Report 21922394 (Version 2)
Quarter: 2023Q1

REPORT INFORMATION
  Report Type: Report from Study
  Country: US (occurrence: US)
  Receive Date: 20230128
  Receipt Date: 20230130
  Transmission Date: 20230418
  Serious: No
  Sender: FDA-Public Use
  Company Number: US-002147023-NVSC2023US019179

PATIENT
  Sex: Male
  Weight: 80.29 kg

DRUGS (2)
  1. ENTRESTO [Suspect]
     Active Substance: SACUBITRIL\VALSARTAN
     Indication: Thrombosis
     Dosage: 1 DOSAGE FORM
     Route: 048
     Dates: start: 202206
  2. ENTRESTO [Suspect]
     Active Substance: SACUBITRIL\VALSARTAN
     Indication: Heart valve replacement

REACTIONS (2)
  - Cough [Unknown]
  - Product use in unapproved indication [Unknown]
